FAERS Safety Report 6335084-7 (Version None)
Quarter: 2009Q3

REPORT INFORMATION
  Report Type: 
  Country: None (occurrence: None)
  Receive Date: 20090831
  Receipt Date: 20090821
  Transmission Date: 20100115
  Serious: Yes (Other)
  Sender: FDA-Public Use
  Company Number: B0590398A

PATIENT
  Sex: Female

DRUGS (4)
  1. RANITIDINE [Suspect]
     Indication: GASTRITIS
     Dosage: 150MG TWICE PER DAY
     Route: 048
     Dates: start: 20090701, end: 20090728
  2. SOMAC [Suspect]
     Indication: GASTRITIS
     Route: 048
     Dates: start: 20090701, end: 20090728
  3. TRIOBE [Concomitant]
     Route: 048
     Dates: end: 20090807
  4. CENTYL [Concomitant]
     Indication: HYPERTENSION
     Dosage: 5MG PER DAY
     Route: 048

REACTIONS (7)
  - CONFUSIONAL STATE [None]
  - DRUG INTERACTION [None]
  - FATIGUE [None]
  - HALLUCINATION, VISUAL [None]
  - LISTLESS [None]
  - NEUROLOGICAL SYMPTOM [None]
  - VISION BLURRED [None]
